FAERS Safety Report 20053112 (Version 7)
Quarter: 2022Q4

REPORT INFORMATION
  Report Type: Report from Study
  Country: US (occurrence: US)
  Receive Date: 20211110
  Receipt Date: 20221012
  Transmission Date: 20230113
  Serious: Yes (Other)
  Sender: FDA-Public Use
  Company Number: US-NOVARTISTESTPH-NVSC2021US255089

PATIENT
  Sex: Female

DRUGS (2)
  1. COSENTYX [Suspect]
     Active Substance: SECUKINUMAB
     Indication: Psoriasis
     Dosage: 300 MG, QW (ONCE A WEEK FOR 5 WEEKS)
     Route: 058
  2. COSENTYX [Suspect]
     Active Substance: SECUKINUMAB
     Dosage: 300 MG, QMO (ONCE EVERY 4 WEEKS)
     Route: 058

REACTIONS (4)
  - Psoriatic arthropathy [Unknown]
  - Injection site swelling [Recovered/Resolved]
  - Paraesthesia [Unknown]
  - Therapeutic product effect incomplete [Unknown]
